FAERS Safety Report 25679792 (Version 1)
Quarter: 2025Q3

REPORT INFORMATION
  Report Type: Spontaneous
  Country: EU (occurrence: EU)
  Receive Date: 20250814
  Receipt Date: 20250814
  Transmission Date: 20251021
  Serious: Yes (Other)
  Sender: TEVA
  Company Number: EU-Merck Healthcare KGaA-2025034423

PATIENT
  Age: 56 Year
  Sex: Male
  Weight: 71 kg

DRUGS (21)
  1. LENALIDOMIDE [Suspect]
     Active Substance: LENALIDOMIDE
     Indication: Diffuse large B-cell lymphoma
     Dosage: THE LAST DOSE PRIOR TO ONSET OF SAE WAS GIVEN ON 02-MAR-2022.
     Route: 048
     Dates: start: 20220301
  2. TAFASITAMAB [Suspect]
     Active Substance: TAFASITAMAB
     Indication: Diffuse large B-cell lymphoma
     Route: 065
     Dates: start: 20220302
  3. PREDNISOLONE [Suspect]
     Active Substance: PREDNISOLONE
     Indication: Diffuse large B-cell lymphoma
     Dosage: UNKNOWN?THE LAST DOSE PRIOR TO ONSET OF SAE WAS GIVEN ON 01-MAR-2022.
     Route: 065
     Dates: start: 20220301
  4. NEULASTA [Concomitant]
     Active Substance: PEGFILGRASTIM
     Indication: Prophylaxis
     Route: 058
     Dates: start: 20220303, end: 20220303
  5. NOVALGIN [Concomitant]
     Indication: Prophylaxis
     Dosage: NOVALGIN [CAFFEINE;PARACETAMOL;PROPYPHENAZONE]
     Route: 048
     Dates: start: 20220220
  6. ACETAMINOPHEN [Concomitant]
     Active Substance: ACETAMINOPHEN
     Indication: Diffuse large B-cell lymphoma
     Route: 048
     Dates: start: 20220221
  7. DOXORUBICIN [Suspect]
     Active Substance: DOXORUBICIN
     Indication: Diffuse large B-cell lymphoma
     Dosage: UNKNOWN?THE LAST DOSE PRIOR TO ONSET OF SAE WAS GIVEN ON 01-MAR-2022.
     Route: 042
     Dates: start: 20220301
  8. LOVENOX [Concomitant]
     Active Substance: ENOXAPARIN SODIUM
     Indication: Prophylaxis
     Dosage: LOVENOX [ENOXAPARIN SODIUM]
     Route: 058
     Dates: start: 20220223
  9. ZOLPIDEM TARTRATE [Concomitant]
     Active Substance: ZOLPIDEM TARTRATE
     Indication: Prophylaxis
     Route: 048
     Dates: start: 20220221, end: 20220309
  10. ZYPREXA [Concomitant]
     Active Substance: OLANZAPINE
     Indication: Prophylaxis
     Route: 048
     Dates: start: 20220302, end: 20220304
  11. LIDAPRIM [Concomitant]
     Indication: Prophylaxis
     Dosage: 800/160 DAILY, LIDAPRIM [SULFAMETROLE;TRIMETHOPRIM]
     Route: 048
     Dates: start: 20220228
  12. RITUXIMAB [Suspect]
     Active Substance: RITUXIMAB
     Indication: Diffuse large B-cell lymphoma
     Dosage: THE LAST DOSE PRIOR TO ONSET OF SAE WAS GIVEN ON 01-MAR-2022.
     Route: 042
     Dates: start: 20220301
  13. HYDROMORPHONE HYDROCHLORIDE [Concomitant]
     Active Substance: HYDROMORPHONE HYDROCHLORIDE
     Indication: Prophylaxis
     Route: 048
     Dates: start: 20220228
  14. HYDROMORPHONE HYDROCHLORIDE [Concomitant]
     Active Substance: HYDROMORPHONE HYDROCHLORIDE
     Indication: Prophylaxis
     Route: 048
     Dates: start: 20220222, end: 20220309
  15. VINCRISTINE [Suspect]
     Active Substance: VINCRISTINE
     Indication: Diffuse large B-cell lymphoma
     Dosage: THE LAST DOSE PRIOR TO ONSET OF SAE WAS GIVEN ON 01-MAR-2022.
     Route: 042
     Dates: start: 20220301
  16. VALACYCLOVIR HYDROCHLORIDE [Concomitant]
     Active Substance: VALACYCLOVIR HYDROCHLORIDE
     Indication: Prophylaxis
     Route: 048
     Dates: start: 20220228
  17. CYCLOPHOSPHAMIDE [Suspect]
     Active Substance: CYCLOPHOSPHAMIDE
     Indication: Diffuse large B-cell lymphoma
     Dosage: UNKNOWN?THE LAST DOSE PRIOR TO ONSET OF SAE WAS GIVEN ON 01-MAR-2022.
     Route: 042
     Dates: start: 20220301
  18. PREDNISOLONE [Concomitant]
     Active Substance: PREDNISOLONE
     Indication: Prophylaxis
     Dosage: PREDNISOLON [PREDNISOLONE]
     Route: 048
     Dates: start: 20220222, end: 20220305
  19. PURINOL [Concomitant]
     Indication: Prophylaxis
     Dosage: PURINOL [ALLOPURINOL]
     Route: 048
     Dates: start: 20220302, end: 20220323
  20. SODIUM CHLORIDE [Concomitant]
     Active Substance: SODIUM CHLORIDE
     Indication: Prophylaxis
     Route: 042
     Dates: start: 20220228, end: 20220304
  21. PANTOPRAZOLE SODIUM [Concomitant]
     Active Substance: PANTOPRAZOLE SODIUM
     Indication: Prophylaxis
     Route: 065
     Dates: start: 20220221

REACTIONS (1)
  - Tumour lysis syndrome [Recovered/Resolved]

NARRATIVE: CASE EVENT DATE: 20220302
